FAERS Safety Report 24208846 (Version 1)
Quarter: 2024Q3

REPORT INFORMATION
  Report Type: Spontaneous
  Country: US (occurrence: None)
  Receive Date: 20240813
  Receipt Date: 20240813
  Transmission Date: 20241017
  Serious: No
  Sender: Public
  Company Number: None

PATIENT
  Sex: Female

DRUGS (2)
  1. AMBRISENTAN [Suspect]
     Active Substance: AMBRISENTAN
     Indication: Pulmonary hypertension
     Dosage: FREQUENCY : DAILY;?
     Route: 048
  2. SILDENAFIL [Suspect]
     Active Substance: SILDENAFIL

REACTIONS (5)
  - Onychoclasis [None]
  - Nail ridging [None]
  - Skin discolouration [None]
  - Flushing [None]
  - Vasodilatation [None]
